FAERS Safety Report 8444842-4 (Version None)
Quarter: 2012Q2

REPORT INFORMATION
  Report Type: 
  Country: None (occurrence: None)
  Receive Date: 20120618
  Receipt Date: 20120611
  Transmission Date: 20120825
  Serious: Yes (Other)
  Sender: FDA-Public Use
  Company Number: PHHY2012CA045930

PATIENT
  Sex: Female
  Weight: 58.957 kg

DRUGS (6)
  1. EXTAVIA [Suspect]
     Dosage: 4 MIU, QOD
     Route: 058
  2. ESTRACE/MEDROXY [Concomitant]
     Dosage: UNK UKN, UNK
  3. EXTAVIA [Suspect]
     Dosage: 6 MIU, QOD
     Route: 058
     Dates: end: 20120606
  4. EXTAVIA [Suspect]
     Indication: SECONDARY PROGRESSIVE MULTIPLE SCLEROSIS
     Dosage: 8 MIU, QOD
     Route: 058
     Dates: start: 20120522, end: 20120606
  5. CALCIUM WITH VITAMIN D [Concomitant]
     Dosage: UNK UKN, UNK
  6. ATENOLOL [Concomitant]
     Dosage: UNK UKN, UNK

REACTIONS (7)
  - DIZZINESS [None]
  - NAUSEA [None]
  - CANDIDIASIS [None]
  - HYPOAESTHESIA [None]
  - SPEECH DISORDER [None]
  - TONGUE DISORDER [None]
  - DRY MOUTH [None]
